FAERS Safety Report 11957718 (Version 1)
Quarter: 2016Q1

REPORT INFORMATION
  Report Type: Spontaneous
  Country: TW (occurrence: TW)
  Receive Date: 20160126
  Receipt Date: 20160126
  Transmission Date: 20160526
  Serious: Yes (Death, Hospitalization)
  Sender: FDA-Public Use
  Company Number: TW-HQ SPECIALTY-TW-2016INT000029

PATIENT
  Age: 54 Year
  Sex: Male

DRUGS (2)
  1. DOXORUBICIN [Suspect]
     Active Substance: DOXORUBICIN
     Dosage: UNK, FIVE COURSES
  2. PACLITAXEL. [Suspect]
     Active Substance: PACLITAXEL
     Indication: ANGIOSARCOMA
     Dosage: UNK, FIVE COURSES

REACTIONS (9)
  - Infectious pleural effusion [Unknown]
  - Respiratory distress [Unknown]
  - Nocardiosis [Unknown]
  - Chest pain [Unknown]
  - Multiple organ dysfunction syndrome [Fatal]
  - Pneumonia [Fatal]
  - Acute respiratory failure [Unknown]
  - Pyrexia [Unknown]
  - Purulent discharge [Unknown]
